FAERS Safety Report 6685012-X (Version None)
Quarter: 2010Q2

REPORT INFORMATION
  Report Type: 
  Country: None (occurrence: None)
  Receive Date: 20100416
  Receipt Date: 20100414
  Transmission Date: 20101027
  Serious: Yes (Life-Threatening, Hospitalization)
  Sender: FDA-Public Use
  Company Number: FR-JNJFOC-20090708956

PATIENT
  Sex: Male
  Weight: 78 kg

DRUGS (9)
  1. DURAGESIC-100 [Suspect]
     Indication: DRUG USE FOR UNKNOWN INDICATION
     Route: 062
  2. ELOXATIN [Suspect]
     Indication: DRUG USE FOR UNKNOWN INDICATION
     Route: 042
  3. ERBITUX [Suspect]
     Indication: DRUG USE FOR UNKNOWN INDICATION
     Route: 042
  4. FLUOROURACIL [Suspect]
     Indication: DRUG USE FOR UNKNOWN INDICATION
  5. METHYLPREDNISOLONE [Concomitant]
  6. ZOPHREN [Concomitant]
  7. PRIMPERAN [Concomitant]
  8. EMEND [Concomitant]
  9. EMEND [Concomitant]

REACTIONS (18)
  - ASPIRATION [None]
  - BLOOD MAGNESIUM INCREASED [None]
  - BUNDLE BRANCH BLOCK RIGHT [None]
  - CLONUS [None]
  - COMA [None]
  - CONVULSION [None]
  - DRUG INEFFECTIVE [None]
  - DYSPNOEA [None]
  - ENDOTRACHEAL INTUBATION COMPLICATION [None]
  - HAEMODIALYSIS [None]
  - LARYNGEAL DISORDER [None]
  - MUSCLE CONTRACTIONS INVOLUNTARY [None]
  - NERVOUS SYSTEM DISORDER [None]
  - PARAESTHESIA [None]
  - RENAL FAILURE ACUTE [None]
  - URINARY INCONTINENCE [None]
  - VOMITING [None]
  - WOUND [None]
